FAERS Safety Report 21873366 (Version 1)
Quarter: 2023Q1

REPORT INFORMATION
  Report Type: Spontaneous
  Country: CA (occurrence: CA)
  Receive Date: 20230117
  Receipt Date: 20230117
  Transmission Date: 20230417
  Serious: Yes (Other)
  Sender: FDA-Public Use
  Company Number: CA-ABBVIE-4273372

PATIENT
  Sex: Female

DRUGS (1)
  1. HUMIRA [Suspect]
     Active Substance: ADALIMUMAB
     Indication: Crohn^s disease
     Route: 058

REACTIONS (8)
  - Post procedural swelling [Unknown]
  - Malaise [Unknown]
  - Arthralgia [Unknown]
  - Abdominal pain [Unknown]
  - Eye operation [Unknown]
  - Skin cancer [Unknown]
  - Abdominal discomfort [Unknown]
  - Cataract [Unknown]
